FAERS Safety Report 20430849 (Version 1)
Quarter: 2022Q1

REPORT INFORMATION
  Report Type: Report from Study
  Country: AU (occurrence: AU)
  Receive Date: 20220204
  Receipt Date: 20220204
  Transmission Date: 20220424
  Serious: Yes (Hospitalization)
  Sender: FDA-Public Use
  Company Number: None

PATIENT

DRUGS (34)
  1. PEGASPARGASE [Suspect]
     Active Substance: PEGASPARGASE
     Indication: Acute lymphocytic leukaemia refractory
     Dosage: UNK
     Route: 042
     Dates: start: 20210302, end: 20210302
  2. CYCLOPHOSPHAMIDE [Suspect]
     Active Substance: CYCLOPHOSPHAMIDE
     Indication: Acute lymphocytic leukaemia refractory
     Dosage: UNK, 2X A WEEK
     Route: 042
     Dates: start: 20210413, end: 20210413
  3. CYCLOPHOSPHAMIDE [Suspect]
     Active Substance: CYCLOPHOSPHAMIDE
     Dosage: UNK
     Route: 042
     Dates: start: 20210511, end: 20210511
  4. CYTARABINE [Suspect]
     Active Substance: CYTARABINE
     Indication: Acute lymphocytic leukaemia refractory
     Dosage: UNK
     Route: 042
     Dates: start: 20210317, end: 20210320
  5. CYTARABINE [Suspect]
     Active Substance: CYTARABINE
     Dosage: UNK
     Route: 042
     Dates: start: 20210406, end: 20210409
  6. CYTARABINE [Suspect]
     Active Substance: CYTARABINE
     Dosage: UNK
     Route: 042
     Dates: start: 20210413, end: 20210416
  7. CYTARABINE [Suspect]
     Active Substance: CYTARABINE
     Dosage: UNK
     Route: 042
     Dates: start: 20210504
  8. MERCAPTOPURINE [Suspect]
     Active Substance: MERCAPTOPURINE
     Indication: Acute lymphocytic leukaemia refractory
     Dosage: UNK, QD
     Route: 048
     Dates: start: 20210317, end: 20210321
  9. MERCAPTOPURINE [Suspect]
     Active Substance: MERCAPTOPURINE
     Dosage: UNK, QD
     Route: 048
     Dates: start: 20210406, end: 20210419
  10. MERCAPTOPURINE [Suspect]
     Active Substance: MERCAPTOPURINE
     Dosage: UNK
     Route: 048
     Dates: start: 20210504
  11. PREDNISONE ACETATE [Suspect]
     Active Substance: PREDNISONE ACETATE
     Indication: Acute lymphocytic leukaemia refractory
     Dosage: 45 MG, UNK
     Route: 048
     Dates: start: 20210306, end: 20210309
  12. PREDNISONE ACETATE [Suspect]
     Active Substance: PREDNISONE ACETATE
     Dosage: 22.5 MG, UNK
     Route: 048
     Dates: start: 20210309, end: 20210312
  13. PREDNISONE ACETATE [Suspect]
     Active Substance: PREDNISONE ACETATE
     Dosage: 11.25 MG, UNK
     Route: 048
     Dates: start: 20210313, end: 20210315
  14. METHOTREXATE SODIUM [Suspect]
     Active Substance: METHOTREXATE SODIUM
     Indication: Acute lymphocytic leukaemia refractory
     Dosage: UNK
     Route: 037
     Dates: start: 20210309, end: 20210309
  15. VENETOCLAX [Suspect]
     Active Substance: VENETOCLAX
     Indication: Acute lymphocytic leukaemia refractory
     Dosage: 200 MG, QD
     Route: 048
     Dates: start: 20210302, end: 20210302
  16. VENETOCLAX [Suspect]
     Active Substance: VENETOCLAX
     Dosage: 400 MG, PRN
     Route: 048
     Dates: start: 20210303, end: 20210408
  17. VENETOCLAX [Suspect]
     Active Substance: VENETOCLAX
     Dosage: 400 MG, QD
     Route: 048
     Dates: start: 20210409, end: 20210504
  18. VENETOCLAX [Suspect]
     Active Substance: VENETOCLAX
     Dosage: 200 MG, QD
     Route: 048
     Dates: start: 20210505, end: 20210512
  19. VINCRISTINE SULFATE [Suspect]
     Active Substance: VINCRISTINE SULFATE
     Indication: Acute lymphocytic leukaemia refractory
     Dosage: 2 MG, UNK
     Route: 042
     Dates: start: 20210305, end: 20210305
  20. BACTRIM [Concomitant]
     Active Substance: SULFAMETHOXAZOLE\TRIMETHOPRIM
     Indication: Pneumocystis jirovecii pneumonia
     Dosage: UNK
     Route: 048
     Dates: start: 20210312
  21. TN UNSPECIFIED [Concomitant]
     Indication: Oral discomfort
     Dosage: 4 ML, QID
     Route: 048
     Dates: start: 20210302
  22. TN UNSPECIFIED [Concomitant]
     Indication: Nausea
     Dosage: 7 MG, UNK
     Route: 065
     Dates: start: 20210205
  23. TN UNSPECIFIED [Concomitant]
     Indication: Vomiting
     Dosage: UNK
     Route: 065
     Dates: start: 20210312
  24. TN UNSPECIFIED [Concomitant]
     Dosage: UNK
     Route: 042
  25. TN UNSPECIFIED [Concomitant]
     Dosage: UNK
     Route: 048
  26. TN UNSPECIFIED [Concomitant]
     Indication: Constipation
     Dosage: 17 MG, QD
     Route: 048
     Dates: start: 20210221
  27. TN UNSPECIFIED [Concomitant]
     Dosage: 5 ML
     Route: 048
     Dates: start: 20210305
  28. TN UNSPECIFIED [Concomitant]
     Indication: Pain in jaw
     Dosage: 5.3 MG, UNK
     Route: 048
     Dates: start: 20210210
  29. TN UNSPECIFIED [Concomitant]
     Indication: Pain in jaw
     Dosage: UNK
     Route: 048
     Dates: start: 20210210
  30. TN UNSPECIFIED [Concomitant]
     Indication: Oral discomfort
     Dosage: 40 ML, QID
     Dates: start: 20210302
  31. PIPERACILLIN SODIUM\TAZOBACTAM SODIUM [Concomitant]
     Active Substance: PIPERACILLIN SODIUM\TAZOBACTAM SODIUM
     Indication: Pyrexia
     Dosage: 16000 MG, UNK
     Route: 042
     Dates: start: 20210309, end: 20210310
  32. PIPERACILLIN SODIUM\TAZOBACTAM SODIUM [Concomitant]
     Active Substance: PIPERACILLIN SODIUM\TAZOBACTAM SODIUM
     Indication: Infection
     Dosage: 16 G
     Route: 042
     Dates: start: 20210323, end: 20210323
  33. PIPERACILLIN SODIUM\TAZOBACTAM SODIUM [Concomitant]
     Active Substance: PIPERACILLIN SODIUM\TAZOBACTAM SODIUM
     Dosage: 12000 MG
     Route: 042
     Dates: start: 20210430, end: 20210430
  34. PIPERACILLIN SODIUM\TAZOBACTAM SODIUM [Concomitant]
     Active Substance: PIPERACILLIN SODIUM\TAZOBACTAM SODIUM
     Dosage: 12000 UNK
     Route: 065
     Dates: start: 20210506

REACTIONS (2)
  - Decreased appetite [Recovered/Resolved]
  - Decreased appetite [Unknown]

NARRATIVE: CASE EVENT DATE: 20210506
